FAERS Safety Report 7763599 (Version 3)
Quarter: 2013Q2

REPORT INFORMATION
  Report Type: Spontaneous
  Country: FR (occurrence: None)
  Receive Date: 20101222
  Receipt Date: 20130415
  Transmission Date: 20140414
  Serious: Yes (Hospitalization)
  Sender: FDA-Public Use
  Company Number: 7030618

PATIENT
  Age: 45 Year
  Sex: Female

DRUGS (11)
  1. LEVOTHYROXINE SODIUM\LIOTHYRONINE SODIUM [Suspect]
     Indication: HYPOTHYROIDISM
     Dosage: 1 DF (1 DF, 1 IN 1 D), ORAL
     Route: 048
     Dates: start: 2004, end: 2005
  2. BENFLUOREX HYDROCHLORIDE [Suspect]
     Indication: HYPERLIPIDAEMIA
     Dosage: 2 DF (1 DF, 2 IN 1 D), ORAL
     Route: 048
     Dates: start: 20040526, end: 20091212
  3. HYDROCORTISONE [Suspect]
     Indication: PRODUCT USED FOR UNKNOWN INDICATION
     Dosage: 1 DF (1 DF, 1 IN 1 D), ORAL
     Route: 048
     Dates: start: 2004, end: 2005
  4. FENOFIBRATE [Suspect]
     Indication: HYPERLIPIDAEMIA
     Dosage: 1 DF (1 DF, 1 IN 1 D), ORAL
     Route: 048
     Dates: start: 2004, end: 2005
  5. CANDESARTAN CILEXETIL [Concomitant]
  6. LASILIX (FUROSEMIDE) (FUROSEMIDE) [Concomitant]
  7. ALDALIX (OSYROL-LASIX) (FUROSEMIDE, SPIRONOLACTONE) [Concomitant]
  8. LEXOMIL (BROMAZEPAM) (BROMAZEPAM) [Concomitant]
  9. CARDARONE (AMIODARONE HYDROCHLORIDE) (AMIODARONE HYDROCHLORIDE) [Concomitant]
  10. ALDACTONE [Concomitant]
  11. PREVISCAN (FLUINDIONE) (FLUINDIONE) [Concomitant]

REACTIONS (6)
  - Cardiac valve disease [None]
  - Mitral valve stenosis [None]
  - Mitral valve incompetence [None]
  - Aortic valve incompetence [None]
  - Pulmonary arterial hypertension [None]
  - Tricuspid valve incompetence [None]
